FAERS Safety Report 7049225-X (Version None)
Quarter: 2010Q4

REPORT INFORMATION
  Report Type: 
  Country: None (occurrence: None)
  Receive Date: 20101018
  Receipt Date: 20101006
  Transmission Date: 20110411
  Serious: Yes (Other)
  Sender: FDA-Public Use
  Company Number: GB-ROCHE-593510

PATIENT
  Sex: Female
  Weight: 2.8 kg

DRUGS (2)
  1. ORLISTAT [Suspect]
     Indication: OBESITY
     Route: 064
     Dates: start: 20080711, end: 20080904
  2. EPILIM [Concomitant]
     Indication: EPILEPSY

REACTIONS (3)
  - CAESAREAN SECTION [None]
  - INBORN ERROR OF METABOLISM [None]
  - MATERNAL DRUGS AFFECTING FOETUS [None]
